FAERS Safety Report 25772212 (Version 1)
Quarter: 2025Q3

REPORT INFORMATION
  Report Type: Spontaneous
  Country: US (occurrence: US)
  Receive Date: 20250908
  Receipt Date: 20250908
  Transmission Date: 20251020
  Serious: No
  Sender: GLAXOSMITHKLINE
  Company Number: US-GSK-US2025AMR099913

PATIENT
  Sex: Male

DRUGS (8)
  1. NUCALA [Suspect]
     Active Substance: MEPOLIZUMAB
     Indication: Chronic obstructive pulmonary disease
     Dosage: 100 MG, Q4W
  2. NUCALA [Suspect]
     Active Substance: MEPOLIZUMAB
     Indication: Illness
  3. NUCALA [Suspect]
     Active Substance: MEPOLIZUMAB
     Indication: Oesophageal candidiasis
  4. NUCALA [Suspect]
     Active Substance: MEPOLIZUMAB
     Indication: Follicular cystitis
  5. NUCALA [Suspect]
     Active Substance: MEPOLIZUMAB
     Indication: Immune system disorder
  6. NUCALA [Suspect]
     Active Substance: MEPOLIZUMAB
     Indication: Emphysema
  7. COMBIVENT RESPIMAT [Concomitant]
     Active Substance: ALBUTEROL SULFATE\IPRATROPIUM BROMIDE
     Indication: Product used for unknown indication
  8. ADVAIR HFA [Concomitant]
     Active Substance: FLUTICASONE PROPIONATE\SALMETEROL XINAFOATE
     Indication: Product used for unknown indication

REACTIONS (2)
  - Feeling abnormal [Unknown]
  - Product use in unapproved indication [Unknown]
